FAERS Safety Report 12099781 (Version 1)
Quarter: 2016Q1

REPORT INFORMATION
  Report Type: Report from Study
  Country: US (occurrence: US)
  Receive Date: 20160222
  Receipt Date: 20160222
  Transmission Date: 20160526
  Serious: No
  Sender: FDA-Public Use
  Company Number: US-BIOGEN-2013BI083151

PATIENT
  Age: 39 Year
  Sex: Female

DRUGS (5)
  1. AVONEX [Suspect]
     Active Substance: INTERFERON BETA-1A
     Dates: end: 20141019
  2. AVONEX [Suspect]
     Active Substance: INTERFERON BETA-1A
     Dates: end: 20141229
  3. AVONEX [Suspect]
     Active Substance: INTERFERON BETA-1A
     Dates: start: 20160117
  4. AVONEX [Suspect]
     Active Substance: INTERFERON BETA-1A
     Indication: MULTIPLE SCLEROSIS
     Route: 030
     Dates: start: 20110101, end: 20120607
  5. AVONEX [Suspect]
     Active Substance: INTERFERON BETA-1A
     Route: 030
     Dates: start: 20120613

REACTIONS (7)
  - Nervousness [Not Recovered/Not Resolved]
  - Hypoaesthesia [Unknown]
  - Fear [Not Recovered/Not Resolved]
  - General symptom [Unknown]
  - Hepatic enzyme increased [Unknown]
  - Gastric disorder [Unknown]
  - Headache [Not Recovered/Not Resolved]

NARRATIVE: CASE EVENT DATE: 201308
